FAERS Safety Report 22046172 (Version 2)
Quarter: 2023Q2

REPORT INFORMATION
  Report Type: Report from Study
  Country: US (occurrence: US)
  Receive Date: 20230228
  Receipt Date: 20230426
  Transmission Date: 20230722
  Serious: No
  Sender: FDA-Public Use
  Company Number: US-KYOWAKIRIN-2023BKK003003

PATIENT

DRUGS (4)
  1. CRYSVITA [Suspect]
     Active Substance: BUROSUMAB-TWZA
     Indication: Hereditary hypophosphataemic rickets
     Dosage: 80 MG, 1X/4 WEEKS (STRENGTH 20 AND 30 MG/ML COMBINED TO ACHIEVE DOSE OF 80 MG)
     Route: 058
     Dates: start: 20221121
  2. CRYSVITA [Suspect]
     Active Substance: BUROSUMAB-TWZA
     Dosage: 80 MG, 1X/4 WEEKS (STRENGTH 20 AND 30 MG/ML COMBINED TO ACHIEVE DOSE OF 80 MG)
     Route: 058
  3. CRYSVITA [Suspect]
     Active Substance: BUROSUMAB-TWZA
     Indication: Hereditary hypophosphataemic rickets
     Dosage: 80 MG, 1X/4 WEEKS  (STRENGTH 20 AND 30 MG/ML COMBINED TO ACHIEVE DOSE OF 80 MG)
     Route: 058
     Dates: start: 20221121
  4. CRYSVITA [Suspect]
     Active Substance: BUROSUMAB-TWZA
     Dosage: 80 MG, 1X/4 WEEKS (STRENGTH 20 AND 30 MG/ML COMBINED TO ACHIEVE DOSE OF 80 MG)
     Route: 058

REACTIONS (2)
  - Ear infection [Unknown]
  - Inappropriate schedule of product administration [Recovered/Resolved]

NARRATIVE: CASE EVENT DATE: 20230101
